FAERS Safety Report 11704742 (Version 1)
Quarter: 2015Q4

REPORT INFORMATION
  Report Type: Spontaneous
  Country: US (occurrence: US)
  Receive Date: 20151106
  Receipt Date: 20151106
  Transmission Date: 20160304
  Serious: Yes (Other)
  Sender: FDA-Public Use
  Company Number: US-ELI_LILLY_AND_COMPANY-US201510010170

PATIENT
  Age: 46 Year
  Sex: Male

DRUGS (2)
  1. GEMCITABINE HYDROCHLORIDE. [Suspect]
     Active Substance: GEMCITABINE HYDROCHLORIDE
     Indication: SOFT TISSUE NEOPLASM
     Dosage: 900 MG/M2, CYCLICAL
     Route: 042
  2. DOCETAXEL. [Concomitant]
     Active Substance: DOCETAXEL
     Indication: SOFT TISSUE NEOPLASM
     Dosage: 100 MG/M2, CYCLICAL
     Route: 042

REACTIONS (1)
  - Gastrointestinal toxicity [Unknown]
